FAERS Safety Report 5135283-6 (Version None)
Quarter: 2006Q4

REPORT INFORMATION
  Report Type: 
  Country: None (occurrence: None)
  Receive Date: 20061024
  Receipt Date: 20061024
  Transmission Date: 20070319
  Serious: Yes (Other)
  Sender: FDA-Public Use
  Company Number: None

PATIENT
  Age: 54 Year
  Sex: Female
  Weight: 75.7507 kg

DRUGS (2)
  1. PAROXETINE HCL [Suspect]
     Indication: ANXIETY
     Dosage: 1 TAB  -20MG-   1 X DAILY  PO
     Route: 048
     Dates: start: 20061003, end: 20061009
  2. PAROXETINE HCL [Suspect]
     Indication: FEAR
     Dosage: 1 TAB  -20MG-   1 X DAILY  PO
     Route: 048
     Dates: start: 20061003, end: 20061009

REACTIONS (9)
  - ABDOMINAL PAIN UPPER [None]
  - ANOREXIA [None]
  - CRYING [None]
  - DEPRESSION [None]
  - DRUG WITHDRAWAL SYNDROME [None]
  - FEAR [None]
  - MOOD SWINGS [None]
  - PARANOIA [None]
  - THERAPEUTIC RESPONSE UNEXPECTED WITH DRUG SUBSTITUTION [None]
